FAERS Safety Report 9222620 (Version 5)
Quarter: 2013Q4

REPORT INFORMATION
  Report Type: Spontaneous
  Country: GB (occurrence: GB)
  Receive Date: 20130410
  Receipt Date: 20131125
  Transmission Date: 20140711
  Serious: Yes (Death)
  Sender: FDA-Public Use
  Company Number: PHHY2013GB034320

PATIENT
  Sex: Male

DRUGS (2)
  1. MYCOPHENOLATE MOFETIL [Suspect]
     Indication: PRODUCT USED FOR UNKNOWN INDICATION
     Dosage: UNK
  2. NPLATE [Suspect]
     Indication: IMMUNE THROMBOCYTOPENIC PURPURA

REACTIONS (11)
  - Death [Fatal]
  - Protein-losing gastroenteropathy [Unknown]
  - Immune thrombocytopenic purpura [Unknown]
  - Pneumonia [Unknown]
  - Gout [Unknown]
  - Hypertension [Unknown]
  - Blood albumin decreased [Unknown]
  - Platelet count decreased [Unknown]
  - Duodenal ulcer [Unknown]
  - Oedema peripheral [Unknown]
  - Malaise [Unknown]
